FAERS Safety Report 21693379 (Version 2)
Quarter: 2023Q1

REPORT INFORMATION
  Report Type: Spontaneous
  Country: US (occurrence: US)
  Receive Date: 20221207
  Receipt Date: 20230309
  Transmission Date: 20230417
  Serious: No
  Sender: FDA-Public Use
  Company Number: US-SA-SAC20221206000822

PATIENT
  Sex: Female

DRUGS (1)
  1. DUPIXENT [Suspect]
     Active Substance: DUPILUMAB
     Dosage: DOSE OR AMOUNT: 300 MG FREQUENCY: OTHER
     Route: 058

REACTIONS (4)
  - Pain in extremity [Unknown]
  - Condition aggravated [Unknown]
  - Oral herpes [Unknown]
  - Dry eye [Not Recovered/Not Resolved]
